FAERS Safety Report 12160679 (Version 3)
Quarter: 2016Q2

REPORT INFORMATION
  Report Type: Spontaneous
  Country: US (occurrence: US)
  Receive Date: 20160308
  Receipt Date: 20160413
  Transmission Date: 20160815
  Serious: Yes (Hospitalization)
  Sender: FDA-Public Use
  Company Number: US-JNJFOC-20160300500

PATIENT
  Sex: Male

DRUGS (5)
  1. RISPERDAL [Suspect]
     Active Substance: RISPERIDONE
     Indication: SCHIZOAFFECTIVE DISORDER
     Route: 048
  2. RISPERDAL CONSTA [Suspect]
     Active Substance: RISPERIDONE
     Indication: SCHIZOAFFECTIVE DISORDER
     Route: 030
     Dates: start: 2014, end: 201602
  3. RISPERDAL [Suspect]
     Active Substance: RISPERIDONE
     Indication: SCHIZOAFFECTIVE DISORDER
     Route: 048
     Dates: end: 2014
  4. RISPERDAL CONSTA [Suspect]
     Active Substance: RISPERIDONE
     Indication: SCHIZOAFFECTIVE DISORDER
     Route: 030
     Dates: start: 201602
  5. RISPERDAL [Suspect]
     Active Substance: RISPERIDONE
     Indication: SCHIZOAFFECTIVE DISORDER
     Dosage: START DATE: ^SOMETIME BEFORE 2005.^
     Route: 048

REACTIONS (12)
  - Dysphemia [Recovering/Resolving]
  - Amnesia [Recovering/Resolving]
  - Abnormal behaviour [Recovering/Resolving]
  - Skin discolouration [Recovering/Resolving]
  - Adverse event [Unknown]
  - Anxiety [Unknown]
  - Hormone level abnormal [Unknown]
  - Confusional state [Recovering/Resolving]
  - Treatment noncompliance [Unknown]
  - Gait disturbance [Recovering/Resolving]
  - Blood cholesterol increased [Unknown]
  - Unevaluable event [Recovering/Resolving]

NARRATIVE: CASE EVENT DATE: 2014
